FAERS Safety Report 7412097-5 (Version None)
Quarter: 2011Q2

REPORT INFORMATION
  Report Type: 
  Country: None (occurrence: None)
  Receive Date: 20110413
  Receipt Date: 20110401
  Transmission Date: 20111010
  Serious: Yes (Hospitalization)
  Sender: FDA-Public Use
  Company Number: RU-BAYER-2011-028759

PATIENT
  Age: 35 Year
  Sex: Female

DRUGS (1)
  1. YARINA [Suspect]
     Indication: ORAL CONTRACEPTION
     Dosage: 1 DF, QD
     Route: 048
     Dates: start: 20100823, end: 20100919

REACTIONS (7)
  - ASTHENIA [None]
  - SOMNOLENCE [None]
  - TINNITUS [None]
  - SENSATION OF HEAVINESS [None]
  - NAUSEA [None]
  - BLOOD PRESSURE DECREASED [None]
  - DIZZINESS [None]
